FAERS Safety Report 23821325 (Version 1)
Quarter: 2024Q2

REPORT INFORMATION
  Report Type: Spontaneous
  Country: US (occurrence: US)
  Receive Date: 20240506
  Receipt Date: 20240506
  Transmission Date: 20240715
  Serious: Yes (Other)
  Sender: FDA-Public Use
  Company Number: US-PFIZER INC-PV202400057836

PATIENT
  Age: 61 Year
  Sex: Female
  Weight: 51.4 kg

DRUGS (7)
  1. BRAFTOVI [Suspect]
     Active Substance: ENCORAFENIB
     Indication: Colon cancer metastatic
     Dosage: 300 MG, DAILY
     Route: 048
     Dates: start: 20220104
  2. BRAFTOVI [Suspect]
     Active Substance: ENCORAFENIB
     Dosage: TAKE 2 CAPSULES (150 MG TOTAL) 1 (ONE) TIME EACH DAY
     Route: 048
     Dates: start: 20220804
  3. BRAFTOVI [Suspect]
     Active Substance: ENCORAFENIB
     Dosage: TAKE 2 CAPSULES (150 MG TOTAL) 1 (ONE) TIME EACH DAY
     Route: 048
     Dates: start: 202404
  4. MEKTOVI [Suspect]
     Active Substance: BINIMETINIB
     Indication: Colon cancer metastatic
     Dosage: 45 MG, 2X/DAY
     Route: 048
     Dates: start: 20220104
  5. MEKTOVI [Suspect]
     Active Substance: BINIMETINIB
     Dosage: TAKE 2 TABLETS (30 MG) BY MOUTH 2 TIMES A DAY.
     Route: 048
     Dates: start: 20220804
  6. MEKTOVI [Suspect]
     Active Substance: BINIMETINIB
     Dosage: TAKE 2 TABLETS (30 MG) BY MOUTH 2 TIMES A DAY.
     Route: 048
     Dates: start: 202404
  7. CETUXIMAB [Concomitant]
     Active Substance: CETUXIMAB
     Indication: Colon cancer metastatic
     Dosage: UNK
     Dates: start: 20211215

REACTIONS (5)
  - Haematochezia [Unknown]
  - Nausea [Unknown]
  - Abdominal pain [Unknown]
  - Chills [Unknown]
  - Off label use [Unknown]

NARRATIVE: CASE EVENT DATE: 20220104
